FAERS Safety Report 21000925 (Version 4)
Quarter: 2022Q3

REPORT INFORMATION
  Report Type: Report from Study
  Country: DE (occurrence: DE)
  Receive Date: 20220624
  Receipt Date: 20220810
  Transmission Date: 20221026
  Serious: Yes (Hospitalization)
  Sender: FDA-Public Use
  Company Number: DE-BRISTOL-MYERS SQUIBB COMPANY-2022-060653

PATIENT
  Age: 33 Year
  Sex: Female
  Weight: 72 kg

DRUGS (7)
  1. AUROROSA [Concomitant]
     Indication: Product used for unknown indication
     Dosage: 1 UNITS NOT SPECIFIED
     Route: 048
     Dates: start: 20210101
  2. IBUPROFEN [Concomitant]
     Active Substance: IBUPROFEN
     Indication: Back pain
     Route: 048
     Dates: start: 20220519
  3. PROPRANOLOL [Concomitant]
     Active Substance: PROPRANOLOL HYDROCHLORIDE
     Indication: Hyperthyroidism
     Route: 048
     Dates: start: 20220519, end: 20220602
  4. DIMETHINDENE [Concomitant]
     Active Substance: DIMETHINDENE
     Indication: Infusion related reaction
     Route: 042
     Dates: start: 20220602, end: 20220602
  5. PREDNISOLONE [Concomitant]
     Active Substance: PREDNISOLONE
     Indication: Infusion related reaction
     Route: 042
     Dates: start: 20220602, end: 20220602
  6. SODIUM CHLORIDE [Concomitant]
     Active Substance: SODIUM CHLORIDE
     Indication: Infusion related reaction
     Route: 042
     Dates: start: 20220602, end: 20220602
  7. ACETAMINOPHEN [Concomitant]
     Active Substance: ACETAMINOPHEN
     Indication: Infusion related reaction
     Route: 048
     Dates: start: 20220602, end: 20220602

REACTIONS (1)
  - Nodule [Recovered/Resolved]

NARRATIVE: CASE EVENT DATE: 20220616
